FAERS Safety Report 8979131 (Version 1)
Quarter: 2012Q4

REPORT INFORMATION
  Report Type: 
  Country: US (occurrence: US)
  Receive Date: 20121221
  Receipt Date: 20121221
  Transmission Date: 20130627
  Serious: Yes (Death)
  Sender: FDA-Public Use
  Company Number: US-GLAXOSMITHKLINE-A1005722A

PATIENT
  Age: 60 Year
  Sex: Male

DRUGS (8)
  1. VOTRIENT [Suspect]
     Indication: RENAL CELL CARCINOMA
     Dosage: 600MG Per day
     Route: 048
     Dates: start: 201203
  2. ZOMETA [Suspect]
     Indication: PRODUCT USED FOR UNKNOWN INDICATION
  3. COUMADIN [Concomitant]
  4. VITAMIN D3 [Concomitant]
  5. DOCUSATE [Concomitant]
  6. MIRALAX [Concomitant]
  7. VICODIN [Concomitant]
  8. FENTANYL [Concomitant]

REACTIONS (2)
  - Death [Fatal]
  - Adverse drug reaction [Unknown]
